FAERS Safety Report 8448455-X (Version None)
Quarter: 2012Q2

REPORT INFORMATION
  Report Type: 
  Country: None (occurrence: None)
  Receive Date: 20120612
  Receipt Date: 20120529
  Transmission Date: 20120825
  Serious: Yes (Other)
  Sender: FDA-Public Use
  Company Number: 2012-002031

PATIENT
  Age: 62 Year
  Sex: Female
  Weight: 54.4 kg

DRUGS (5)
  1. CALCIUM + VITAMIN D /01483701/ (CALCIUM, COLECALCIFEROL) [Concomitant]
  2. VITAMIN B COMPLEX WITH C (ASCORBIC ACID, CALCIUM PANTOTHENATE, CYANOCO [Concomitant]
  3. ACTONEL [Suspect]
     Dosage: 150 MG ONCE MONTHLY, ORAL
     Route: 048
  4. ESCITALOPRAM [Concomitant]
  5. RANITIDINE HYDROCHLORIDE [Concomitant]

REACTIONS (12)
  - DIARRHOEA [None]
  - HEADACHE [None]
  - COUGH [None]
  - OROPHARYNGEAL PAIN [None]
  - GASTROOESOPHAGEAL REFLUX DISEASE [None]
  - ABDOMINAL PAIN UPPER [None]
  - EYE IRRITATION [None]
  - BURNING SENSATION [None]
  - PYREXIA [None]
  - NAUSEA [None]
  - ASTHENIA [None]
  - VOMITING [None]
